FAERS Safety Report 10745604 (Version 1)
Quarter: 2015Q1

REPORT INFORMATION
  Report Type: Spontaneous
  Country: US (occurrence: None)
  Receive Date: 20150127
  Receipt Date: 20150127
  Transmission Date: 20150721
  Serious: Yes (Life-Threatening, Hospitalization, Other)
  Sender: FDA-Public Use
  Company Number: None

PATIENT
  Age: 3 Year
  Sex: Male
  Weight: 16 kg

DRUGS (1)
  1. ONCASPAR [Suspect]
     Active Substance: PEGASPARGASE
     Indication: ACUTE LYMPHOCYTIC LEUKAEMIA
     Dosage: 1577.5 U ONCE IV
     Route: 042
     Dates: start: 20141017

REACTIONS (5)
  - Lip swelling [None]
  - Cough [None]
  - Rash [None]
  - Dyspnoea [None]
  - Rash pruritic [None]

NARRATIVE: CASE EVENT DATE: 20141017
